FAERS Safety Report 6434965-3 (Version None)
Quarter: 2009Q4

REPORT INFORMATION
  Report Type: 
  Country: None (occurrence: None)
  Receive Date: 20091109
  Receipt Date: 20091109
  Transmission Date: 20100525
  Serious: Yes (Other)
  Sender: FDA-Public Use
  Company Number: None

PATIENT
  Age: 82 Year
  Sex: Female
  Weight: 74.8435 kg

DRUGS (1)
  1. TRAMADOL TABLETS 50MG AKYMA [Suspect]
     Indication: CYSTOPEXY
     Dosage: 1 TO 2 TABLETS EVERY 6 HOURS PO
     Route: 048
     Dates: start: 20091107, end: 20091107

REACTIONS (5)
  - ASTHENIA [None]
  - BEDRIDDEN [None]
  - HALLUCINATION [None]
  - MOBILITY DECREASED [None]
  - URINARY INCONTINENCE [None]
